FAERS Safety Report 19722528 (Version 1)
Quarter: 2021Q3

REPORT INFORMATION
  Report Type: Spontaneous
  Country: US (occurrence: US)
  Receive Date: 20210819
  Receipt Date: 20210819
  Transmission Date: 20211014
  Serious: Yes (Other)
  Sender: FDA-Public Use
  Company Number: US-FRESENIUS MEDICAL CARE RENAL THERAPIES GROUP-FMC-2107-001146

PATIENT
  Age: 78 Year
  Sex: Female
  Weight: 89 kg

DRUGS (25)
  1. HYDRALAZINE [Concomitant]
     Active Substance: HYDRALAZINE HYDROCHLORIDE
  2. ZINC. [Concomitant]
     Active Substance: ZINC
  3. ZOLOFT [Concomitant]
     Active Substance: SERTRALINE HYDROCHLORIDE
  4. DELFLEX [Suspect]
     Active Substance: CALCIUM CHLORIDE\DEXTROSE\MAGNESIUM CHLORIDE\SODIUM CHLORIDE\SODIUM LACTATE
     Indication: END STAGE RENAL DISEASE
     Route: 033
     Dates: start: 20210120
  5. AMARYL [Concomitant]
     Active Substance: GLIMEPIRIDE
  6. ASPIRINE [Concomitant]
     Active Substance: ASPIRIN
  7. DIFLUCAN [Concomitant]
     Active Substance: FLUCONAZOLE
  8. GENTAMICIN. [Concomitant]
     Active Substance: GENTAMICIN
  9. LOSARTAN. [Concomitant]
     Active Substance: LOSARTAN
  10. GABAPENTIN. [Concomitant]
     Active Substance: GABAPENTIN
  11. LASIX [Concomitant]
     Active Substance: FUROSEMIDE
  12. NORVASC [Concomitant]
     Active Substance: AMLODIPINE BESYLATE
  13. COLACE [Concomitant]
     Active Substance: DOCUSATE SODIUM
  14. ECHINACEA [Concomitant]
     Active Substance: ECHINACEA, UNSPECIFIED
  15. LORATADINE. [Concomitant]
     Active Substance: LORATADINE
  16. PEPCID [Concomitant]
     Active Substance: FAMOTIDINE
  17. CALCITRIOL. [Concomitant]
     Active Substance: CALCITRIOL
  18. SYNTHROID [Concomitant]
     Active Substance: LEVOTHYROXINE SODIUM
  19. LIPITOR [Concomitant]
     Active Substance: ATORVASTATIN CALCIUM
  20. SEVELAMER [Concomitant]
     Active Substance: SEVELAMER
  21. LABETALOL [Concomitant]
     Active Substance: LABETALOL\LABETALOL HYDROCHLORIDE
  22. CLONIDINE. [Concomitant]
     Active Substance: CLONIDINE
  23. COZAAR [Concomitant]
     Active Substance: LOSARTAN POTASSIUM
  24. SODIUM BICARBONATE. [Concomitant]
     Active Substance: SODIUM BICARBONATE
  25. MIRALAX [Concomitant]
     Active Substance: POLYETHYLENE GLYCOL 3350

REACTIONS (1)
  - Peritonitis bacterial [Recovered/Resolved]
